FAERS Safety Report 23067497 (Version 3)
Quarter: 2023Q4

REPORT INFORMATION
  Report Type: Report from Study
  Country: US (occurrence: US)
  Receive Date: 20231016
  Receipt Date: 20231129
  Transmission Date: 20240110
  Serious: Yes (Hospitalization, Other)
  Sender: FDA-Public Use
  Company Number: US-ABBVIE-5449390

PATIENT
  Sex: Female

DRUGS (2)
  1. RINVOQ [Suspect]
     Active Substance: UPADACITINIB
     Indication: Rheumatoid arthritis
     Dosage: RINVOQ EXTEND RELEASE?FORM STRENGTH 15 MILLIGRAM
     Route: 048
     Dates: start: 20221214, end: 20230724
  2. RINVOQ [Suspect]
     Active Substance: UPADACITINIB
     Indication: Rheumatoid arthritis
     Dosage: RINVOQ EXTEND RELEASE?FORM STRENGTH 15 MILLIGRAM?START DATE 2023
     Route: 048
     Dates: start: 20230816

REACTIONS (6)
  - Shoulder arthroplasty [Not Recovered/Not Resolved]
  - Musculoskeletal stiffness [Unknown]
  - Pain [Unknown]
  - Arthralgia [Not Recovered/Not Resolved]
  - Fall [Unknown]
  - Feeling hot [Unknown]

NARRATIVE: CASE EVENT DATE: 20230101
